FAERS Safety Report 4613193-8 (Version None)
Quarter: 2005Q1

REPORT INFORMATION
  Report Type: 
  Country: None (occurrence: None)
  Receive Date: 20050315
  Receipt Date: 20040302
  Transmission Date: 20050727
  Serious: Yes (Hospitalization)
  Sender: FDA-Public Use
  Company Number: 2003173919JP

PATIENT
  Age: 9 Year
  Sex: Male
  Weight: 17 kg

DRUGS (5)
  1. GENOTROPIN [Suspect]
     Indication: HYPOPITUITARISM
     Dosage: SEE IMAGE
     Route: 058
     Dates: start: 20021011, end: 20021108
  2. GENOTROPIN [Suspect]
     Indication: HYPOPITUITARISM
     Dosage: SEE IMAGE
     Route: 058
     Dates: start: 20021109, end: 20030613
  3. GENOTROPIN [Suspect]
     Indication: HYPOPITUITARISM
     Dosage: SEE IMAGE
     Route: 058
     Dates: start: 20030614, end: 20030820
  4. LEVOTHYROXINE SODIUM [Concomitant]
  5. FERRIC PYROPHOSPHATE           (FERRIC PYROPHOSPHATE) [Concomitant]

REACTIONS (7)
  - ADRENAL INSUFFICIENCY [None]
  - BODY TEMPERATURE INCREASED [None]
  - CONVULSION [None]
  - ENTERITIS [None]
  - FAECES DISCOLOURED [None]
  - INAPPROPRIATE ANTIDIURETIC HORMONE SECRETION [None]
  - PINEAL GERMINOMA [None]
